FAERS Safety Report 17314154 (Version 1)
Quarter: 2020Q1

REPORT INFORMATION
  Report Type: Spontaneous
  Country: GB (occurrence: GB)
  Receive Date: 20200124
  Receipt Date: 20200124
  Transmission Date: 20200409
  Serious: Yes (Hospitalization)
  Sender: FDA-Public Use
  Company Number: GB-TEVA-2020-GB-1171975

PATIENT
  Age: 57 Year
  Sex: Female
  Weight: 65.31 kg

DRUGS (10)
  1. RANITIDINE. [Concomitant]
     Active Substance: RANITIDINE
  2. SEREVENT DISKUS [Concomitant]
     Active Substance: SALMETEROL XINAFOATE
  3. AMITRIPTYLINE [Concomitant]
     Active Substance: AMITRIPTYLINE
  4. VENTOLIN [Concomitant]
     Active Substance: ALBUTEROL SULFATE
  5. PREDNISOLONE. [Concomitant]
     Active Substance: PREDNISOLONE
  6. CODEINE [Concomitant]
     Active Substance: CODEINE
  7. CICLESONIDE [Concomitant]
     Active Substance: CICLESONIDE
  8. MONTELUKAST [Concomitant]
     Active Substance: MONTELUKAST SODIUM
  9. FEXOFENADINE [Concomitant]
     Active Substance: FEXOFENADINE HYDROCHLORIDE
  10. ALENDRONIC ACID [Suspect]
     Active Substance: ALENDRONIC ACID
     Indication: OSTEOPOROSIS PROPHYLAXIS
     Dosage: 70 MG
     Route: 048
     Dates: start: 20080510, end: 20190917

REACTIONS (4)
  - Osteoporosis [Not Recovered/Not Resolved]
  - Pain in extremity [Unknown]
  - Bone disorder [Not Recovered/Not Resolved]
  - Atypical femur fracture [Not Recovered/Not Resolved]

NARRATIVE: CASE EVENT DATE: 20190917
